FAERS Safety Report 12802848 (Version 2)
Quarter: 2016Q4

REPORT INFORMATION
  Report Type: Spontaneous
  Country: JP (occurrence: JP)
  Receive Date: 20161003
  Receipt Date: 20161021
  Transmission Date: 20170207
  Serious: Yes (Other)
  Sender: FDA-Public Use
  Company Number: JP-GLAXOSMITHKLINE-JP2016JPN140317

PATIENT
  Age: 68 Year
  Sex: Male

DRUGS (6)
  1. EMTRIVA [Concomitant]
     Active Substance: EMTRICITABINE
     Indication: HIV INFECTION
     Dosage: 200 MG, TWICE A WEEK
     Dates: start: 201508
  2. STOCRIN [Suspect]
     Active Substance: EFAVIRENZ
     Indication: HIV INFECTION
     Dosage: 600 MG, QD
     Dates: start: 2007
  3. EPIVIR [Suspect]
     Active Substance: LAMIVUDINE
     Indication: HIV INFECTION
     Dosage: 150 MG, QD
     Route: 048
     Dates: start: 2007, end: 201101
  4. EPIVIR [Suspect]
     Active Substance: LAMIVUDINE
     Dosage: 100 MG, UNK
     Route: 048
     Dates: start: 201101, end: 201102
  5. EPIVIR [Suspect]
     Active Substance: LAMIVUDINE
     Dosage: 150 MG, QOD
     Route: 048
     Dates: start: 201202, end: 201508
  6. ZIAGEN [Suspect]
     Active Substance: ABACAVIR SULFATE
     Indication: HIV INFECTION
     Dosage: 600 MG, QD
     Route: 048
     Dates: start: 2007

REACTIONS (5)
  - Malaise [Unknown]
  - Renal impairment [Not Recovered/Not Resolved]
  - Blood urea increased [Not Recovered/Not Resolved]
  - Decreased appetite [Unknown]
  - Blood creatinine increased [Not Recovered/Not Resolved]
